FAERS Safety Report 7107468-0 (Version None)
Quarter: 2010Q4

REPORT INFORMATION
  Report Type: 
  Country: None (occurrence: None)
  Receive Date: 20101112
  Receipt Date: 20101108
  Transmission Date: 20110411
  Serious: Yes (Hospitalization, Other)
  Sender: FDA-Public Use
  Company Number: CIP10002621

PATIENT
  Age: 82 Year
  Sex: Female

DRUGS (1)
  1. BENET (RISEDRONATE SODIUM) TABLET, 2.5MG [Suspect]
     Indication: OSTEOPOROSIS
     Dosage: 2.5 MG ONCE DAILY, ORAL
     Route: 048
     Dates: start: 20030407, end: 20101005

REACTIONS (4)
  - FALL [None]
  - FEMUR FRACTURE [None]
  - PAIN IN EXTREMITY [None]
  - X-RAY LIMB ABNORMAL [None]
